FAERS Safety Report 21093832 (Version 1)
Quarter: 2022Q3

REPORT INFORMATION
  Report Type: Spontaneous
  Country: US (occurrence: US)
  Receive Date: 20220718
  Receipt Date: 20220718
  Transmission Date: 20221026
  Serious: No
  Sender: FDA-Public Use
  Company Number: US-JNJFOC-20220729713

PATIENT

DRUGS (1)
  1. TYLENOL [Suspect]
     Active Substance: ACETAMINOPHEN
     Indication: Pain in extremity
     Route: 065

REACTIONS (2)
  - Pain in extremity [Not Recovered/Not Resolved]
  - Incorrect dose administered [Unknown]
